FAERS Safety Report 6663728-9 (Version None)
Quarter: 2010Q2

REPORT INFORMATION
  Report Type: 
  Country: None (occurrence: None)
  Receive Date: 20100401
  Receipt Date: 20100325
  Transmission Date: 20101027
  Serious: Yes (Other)
  Sender: FDA-Public Use
  Company Number: BR-PFIZER INC-2010025051

PATIENT
  Age: 26 Year
  Sex: Female
  Weight: 47 kg

DRUGS (3)
  1. DEPO-PROVERA [Suspect]
     Indication: CONTRACEPTION
     Dosage: 150 MG, EVERY 3 MONTHS
     Route: 030
     Dates: start: 20090801, end: 20091101
  2. ALGESTONE ACETOPHENIDE [Concomitant]
     Dosage: UNK
     Dates: start: 20100203
  3. ESTRADIOL ENANTATE [Concomitant]
     Dosage: UNK
     Dates: start: 20100203

REACTIONS (3)
  - HYPOTHYROIDISM [None]
  - INADEQUATE LUBRICATION [None]
  - LIBIDO DECREASED [None]
